FAERS Safety Report 7538888 (Version 16)
Quarter: 2012Q4

REPORT INFORMATION
  Report Type: 
  Country: JP (occurrence: JP)
  Receive Date: 20100812
  Receipt Date: 20120904
  Transmission Date: 20130627
  Serious: Yes (Other)
  Sender: FDA-Public Use
  Company Number: JP-PFIZER INC-2010095929

PATIENT
  Age: 81 Year
  Sex: Female

DRUGS (14)
  1. GABAPEN [Suspect]
     Indication: PAIN
     Dosage: 1800 mg, 1x/day
     Route: 048
  2. GABAPEN [Suspect]
     Indication: ABDOMINAL PAIN LOWER
     Dosage: 1200 mg, 1x/day
     Route: 048
     Dates: start: 201202, end: 201202
  3. GABAPEN [Suspect]
     Indication: HEADACHE
     Dosage: 300 mg, 3x/day
     Route: 048
     Dates: start: 201202, end: 20120514
  4. GABAPEN [Suspect]
     Dosage: 400 mg, 3x/day
     Route: 048
     Dates: start: 20120515, end: 201208
  5. GABAPEN [Suspect]
     Dosage: 600 mg daily, (200mg late afternoon and 400mg before sleep)
     Route: 048
     Dates: start: 201208
  6. LYRICA [Interacting]
     Indication: HERPES ZOSTER
     Dosage: 75 mg, 3x/day
     Route: 048
     Dates: start: 20100722
  7. LYRICA [Interacting]
     Indication: PAIN
     Dosage: 75 mg, 2x/day
     Route: 048
     Dates: start: 20120119, end: 2012
  8. LYRICA [Interacting]
     Dosage: 100 mg, 2x/day
     Route: 048
     Dates: start: 20120202, end: 2012
  9. LYRICA [Interacting]
     Dosage: 150 mg, 2x/day
     Route: 048
     Dates: start: 2012, end: 2012
  10. LYRICA [Interacting]
     Dosage: 50 mg, 2x/day
     Route: 048
     Dates: start: 2012, end: 2012
  11. LYRICA [Interacting]
     Dosage: 25 mg, 1x/day
     Route: 048
     Dates: start: 2012, end: 20120511
  12. MORPHINE HYDROCHLORIDE [Interacting]
     Dosage: UNK
     Dates: start: 200903
  13. NAUZELIN [Concomitant]
     Dosage: UNK
  14. TAKEPRON [Concomitant]
     Dosage: UNK

REACTIONS (16)
  - Drug interaction [Unknown]
  - Constipation [Unknown]
  - Herpes zoster [Unknown]
  - Vision blurred [Recovered/Resolved]
  - Abdominal discomfort [Not Recovered/Not Resolved]
  - Dizziness [Unknown]
  - Pruritus [Unknown]
  - Nausea [Unknown]
  - Drug ineffective [Unknown]
  - Headache [Unknown]
  - Pain [Unknown]
  - Pollakiuria [Unknown]
  - Flatulence [Unknown]
  - Somnolence [Unknown]
  - Abdominal pain lower [Unknown]
  - Off label use [Unknown]
